FAERS Safety Report 8182119-5 (Version None)
Quarter: 2012Q1

REPORT INFORMATION
  Report Type: 
  Country: None (occurrence: None)
  Receive Date: 20120302
  Receipt Date: 20120227
  Transmission Date: 20120608
  Serious: Yes (Death, Other)
  Sender: FDA-Public Use
  Company Number: ES-ASTRAZENECA-2010SE26106

PATIENT
  Age: 74 Year
  Sex: Female

DRUGS (11)
  1. AMIODARONE HCL [Interacting]
     Indication: ATRIAL FIBRILLATION
     Route: 048
     Dates: start: 20100304
  2. FENOFIBRATE [Interacting]
     Route: 048
  3. LEVOTHYROXINE SODIUM [Concomitant]
     Route: 048
     Dates: start: 20070101
  4. CRESTOR [Interacting]
     Indication: HYPERTRIGLYCERIDAEMIA
     Route: 048
     Dates: start: 20100305, end: 20100316
  5. CALCIUM/COLECALCIFEROL [Concomitant]
     Dosage: CALCIUM 1.250 MG / CHOLECALCIFEROL 400 U Q 24H
  6. CRESTOR [Suspect]
     Indication: HYPERCHOLESTEROLAEMIA
     Route: 048
     Dates: start: 20100305, end: 20100316
  7. FENOFIBRATE [Interacting]
     Route: 048
  8. FENOFIBRATE [Interacting]
     Indication: HYPERTRIGLYCERIDAEMIA
     Route: 048
     Dates: start: 20100305, end: 20100316
  9. PANTOPRAZOLE [Concomitant]
     Route: 048
     Dates: start: 20070101
  10. SINTROM [Concomitant]
     Route: 048
     Dates: start: 20070101
  11. FENOFIBRATE [Interacting]
     Indication: HYPERCHOLESTEROLAEMIA
     Route: 048
     Dates: start: 20100305, end: 20100316

REACTIONS (3)
  - DRUG INTERACTION [None]
  - HEPATIC FAILURE [None]
  - RHABDOMYOLYSIS [None]
